FAERS Safety Report 18948767 (Version 1)
Quarter: 2021Q1

REPORT INFORMATION
  Report Type: Spontaneous
  Country: US (occurrence: US)
  Receive Date: 20210226
  Receipt Date: 20210226
  Transmission Date: 20210420
  Serious: No
  Sender: FDA-Public Use
  Company Number: US-ROCHE-2374929

PATIENT
  Sex: Female

DRUGS (2)
  1. XOLAIR [Suspect]
     Active Substance: OMALIZUMAB
     Indication: CHRONIC SPONTANEOUS URTICARIA
     Route: 058
     Dates: start: 201808, end: 2019
  2. XOLAIR [Suspect]
     Active Substance: OMALIZUMAB
     Dosage: PREFILLED SYRINGE ;ONGOING: UNKNOWN
     Route: 058
     Dates: start: 20190101

REACTIONS (2)
  - Product quality issue [Unknown]
  - Urticaria [Not Recovered/Not Resolved]

NARRATIVE: CASE EVENT DATE: 2019
